FAERS Safety Report 4795260-1 (Version None)
Quarter: 2005Q4

REPORT INFORMATION
  Report Type: 
  Country: None (occurrence: None)
  Receive Date: 20051012
  Receipt Date: 20051004
  Transmission Date: 20060501
  Serious: Yes (Death, Hospitalization)
  Sender: FDA-Public Use
  Company Number: US-JNJFOC-20050902593

PATIENT
  Age: 73 Year
  Sex: Female

DRUGS (4)
  1. DEXTROMETHORPHAN HYDROBROMIDE [Suspect]
     Indication: DRUG USE FOR UNKNOWN INDICATION
     Route: 048
  2. CONCENTRATED PHOSPHORIC ACID CLEANER [Suspect]
     Indication: DRUG USE FOR UNKNOWN INDICATION
  3. SODIUM HYPOCHLORITE 12.5% (DISINFECTANT) [Suspect]
     Indication: DRUG USE FOR UNKNOWN INDICATION
  4. INHALER [Concomitant]

REACTIONS (2)
  - ASTHMA [None]
  - CHEMICAL POISONING [None]
